FAERS Safety Report 14567084 (Version 1)
Quarter: 2018Q1

REPORT INFORMATION
  Report Type: Spontaneous
  Country: US (occurrence: US)
  Receive Date: 20180222
  Receipt Date: 20180222
  Transmission Date: 20180509
  Serious: No
  Sender: FDA-Public Use
  Company Number: None

PATIENT
  Age: 71 Year
  Sex: Male

DRUGS (1)
  1. CEFEPIME [Suspect]
     Active Substance: CEFEPIME HYDROCHLORIDE
     Route: 042
     Dates: start: 20171116, end: 20171222

REACTIONS (2)
  - Renal impairment [None]
  - Blood creatinine increased [None]

NARRATIVE: CASE EVENT DATE: 20171222
